FAERS Safety Report 18875658 (Version 1)
Quarter: 2021Q1

REPORT INFORMATION
  Report Type: Report from Study
  Country: US (occurrence: US)
  Receive Date: 20210210
  Receipt Date: 20210210
  Transmission Date: 20210420
  Serious: Yes (Other)
  Sender: FDA-Public Use
  Company Number: US-BAYER-2021-051384

PATIENT
  Age: 67 Year
  Sex: Male
  Weight: 87.5 kg

DRUGS (7)
  1. COPANLISIB. [Suspect]
     Active Substance: COPANLISIB
     Indication: NEUROENDOCRINE CARCINOMA
     Dosage: 45 MG ON DAYS 1 AND 15
     Route: 042
     Dates: start: 20200923, end: 20201208
  2. ZOFRAN [Concomitant]
     Active Substance: ONDANSETRON HYDROCHLORIDE
  3. COPANLISIB. [Suspect]
     Active Substance: COPANLISIB
     Indication: METASTASES TO BONE MARROW
  4. OLAPARIB. [Suspect]
     Active Substance: OLAPARIB
     Indication: METASTASES TO BONE MARROW
  5. COMPAZINE [PROCHLORPERAZINE EDISYLATE] [Concomitant]
     Active Substance: PROCHLORPERAZINE EDISYLATE
  6. OLAPARIB. [Suspect]
     Active Substance: OLAPARIB
     Indication: NEUROENDOCRINE CARCINOMA
     Dosage: 250 MG, BID
     Route: 048
     Dates: start: 20200923, end: 20201216
  7. TAMSULOSIN [Concomitant]
     Active Substance: TAMSULOSIN

REACTIONS (1)
  - Weight decreased [Not Recovered/Not Resolved]

NARRATIVE: CASE EVENT DATE: 20201216
